FAERS Safety Report 8502077-0 (Version None)
Quarter: 2012Q3

REPORT INFORMATION
  Report Type: 
  Country: None (occurrence: None)
  Receive Date: 20120711
  Receipt Date: 20120622
  Transmission Date: 20120928
  Serious: Yes (Hospitalization, Other)
  Sender: FDA-Public Use
  Company Number: JP-JNJFOC-20120515491

PATIENT
  Sex: Female
  Weight: 42 kg

DRUGS (7)
  1. METHOTREXATE [Suspect]
     Indication: RHEUMATOID ARTHRITIS
     Dosage: STARTED BEFORE 20-JAN-2006
     Route: 048
  2. PREDNISOLONE [Suspect]
     Indication: RHEUMATOID ARTHRITIS
     Route: 048
  3. REMICADE [Suspect]
     Route: 042
     Dates: start: 20080908
  4. ETODOLAC [Suspect]
     Indication: RHEUMATOID ARTHRITIS
     Route: 048
  5. REMICADE [Suspect]
     Indication: RHEUMATOID ARTHRITIS
     Route: 042
     Dates: start: 20080825
  6. REMICADE [Suspect]
     Dosage: 20TH INFUSION
     Route: 042
     Dates: start: 20120106
  7. REMICADE [Suspect]
     Route: 042
     Dates: start: 20120412

REACTIONS (1)
  - PNEUMONIA [None]
